FAERS Safety Report 18259168 (Version 2)
Quarter: 2020Q3

REPORT INFORMATION
  Report Type: Report from Study
  Country: MX (occurrence: MX)
  Receive Date: 20200911
  Receipt Date: 20200917
  Transmission Date: 20201103
  Serious: Yes (Death)
  Sender: FDA-Public Use
  Company Number: NVSC2020MX249682

PATIENT
  Sex: Male
  Weight: 67 kg

DRUGS (4)
  1. ASPIRIN. [Concomitant]
     Active Substance: ASPIRIN
     Indication: THROMBOSIS
     Dosage: 100 MG, Q24H (STARTED MORE THAN 2YRS AGO)
     Route: 048
  2. ENTRESTO [Suspect]
     Active Substance: SACUBITRIL\VALSARTAN
     Indication: CARDIAC DISORDER
     Dosage: 1 DF, QD
     Route: 048
  3. ASOFLON [Concomitant]
     Indication: URINARY TRACT DISORDER
     Dosage: 1 DF, QD
     Route: 048
     Dates: start: 202002
  4. FUROSEMIDE. [Concomitant]
     Active Substance: FUROSEMIDE
     Indication: FLUID RETENTION
     Dosage: 40 MG, QD (STARTED MORE THAN 2 YEARS AGO)
     Route: 048

REACTIONS (4)
  - Cardiac failure [Fatal]
  - Product use in unapproved indication [Unknown]
  - Product prescribing error [Unknown]
  - Acute myocardial infarction [Fatal]
